FAERS Safety Report 8815140 (Version 1)
Quarter: 2012Q4

REPORT INFORMATION
  Report Type: Report from Study
  Country: US (occurrence: US)
  Receive Date: 20120928
  Receipt Date: 20120928
  Transmission Date: 20130627
  Serious: Yes (Hospitalization)
  Sender: FDA-Public Use
  Company Number: US-ABBOTT-12P-163-0984410-00

PATIENT
  Sex: Female
  Weight: 129.39 kg

DRUGS (4)
  1. HUMIRA [Suspect]
     Indication: RHEUMATOID ARTHRITIS
     Route: 058
     Dates: start: 201206
  2. METOPROLOL [Concomitant]
     Indication: HYPERTENSION
     Dosage: Unknown
  3. CLONIDINE [Concomitant]
     Indication: HYPERTENSION
     Dosage: Unknown
  4. PREDISONE [Concomitant]
     Indication: RHEUMATOID ARTHRITIS
     Dosage: Unknown

REACTIONS (3)
  - Intervertebral disc protrusion [Recovered/Resolved]
  - Nerve compression [Recovered/Resolved]
  - Neck pain [Recovered/Resolved]
